FAERS Safety Report 25385754 (Version 2)
Quarter: 2025Q2

REPORT INFORMATION
  Report Type: Spontaneous
  Country: IT (occurrence: IT)
  Receive Date: 20250602
  Receipt Date: 20250623
  Transmission Date: 20250716
  Serious: Yes (Death, Other)
  Sender: PFIZER
  Company Number: None

PATIENT
  Age: 77 Year
  Sex: Male
  Weight: 75 kg

DRUGS (9)
  1. PANTOPRAZOLE [Interacting]
     Active Substance: PANTOPRAZOLE
     Dosage: 40 MG, 1X/DAY
     Route: 065
     Dates: start: 20250426, end: 20250430
  2. METHOTREXATE SODIUM [Interacting]
     Active Substance: METHOTREXATE SODIUM
     Indication: Central nervous system lymphoma
     Route: 042
     Dates: start: 20250405, end: 20250405
  3. METHOTREXATE SODIUM [Interacting]
     Active Substance: METHOTREXATE SODIUM
     Route: 042
     Dates: start: 20250429, end: 20250429
  4. PIPERACILLIN SODIUM\TAZOBACTAM SODIUM [Interacting]
     Active Substance: PIPERACILLIN SODIUM\TAZOBACTAM SODIUM
     Dosage: 4.5 G, 3X/DAY (EVERY 8 HOURS)
     Route: 042
     Dates: start: 20250427, end: 20250430
  5. RITUXIMAB [Concomitant]
     Active Substance: RITUXIMAB
  6. DELAPRIL HYDROCHLORIDE\INDAPAMIDE [Concomitant]
     Active Substance: DELAPRIL HYDROCHLORIDE\INDAPAMIDE
  7. ACYCLOVIR [Concomitant]
     Active Substance: ACYCLOVIR
  8. BISOPROLOL FUMARATE [Concomitant]
     Active Substance: BISOPROLOL FUMARATE
  9. AMLODIPINE [Concomitant]
     Active Substance: AMLODIPINE BESYLATE

REACTIONS (3)
  - Acute kidney injury [Fatal]
  - Drug interaction [Unknown]
  - Off label use [Unknown]

NARRATIVE: CASE EVENT DATE: 20250405
